FAERS Safety Report 10736350 (Version 1)
Quarter: 2015Q1

REPORT INFORMATION
  Report Type: Spontaneous
  Country: US (occurrence: None)
  Receive Date: 20150123
  Receipt Date: 20150123
  Transmission Date: 20150721
  Serious: Yes (Death)
  Sender: FDA-Public Use
  Company Number: None

PATIENT

DRUGS (1)
  1. ETHYLENEDIAMINE TETRAACETIC ACID (EDTA) [Suspect]
     Active Substance: EDETIC ACID

REACTIONS (5)
  - Cold sweat [None]
  - Pulse absent [None]
  - Blood potassium increased [None]
  - Blood pressure immeasurable [None]
  - Lethargy [None]

NARRATIVE: CASE EVENT DATE: 20150122
